FAERS Safety Report 8093306-9 (Version None)
Quarter: 2012Q1

REPORT INFORMATION
  Report Type: 
  Country: None (occurrence: None)
  Receive Date: 20120128
  Receipt Date: 20111014
  Transmission Date: 20120608
  Serious: No
  Sender: FDA-Public Use
  Company Number: US-ABBOTT-11P-163-0840350-00

PATIENT
  Age: 63 Year
  Sex: Female

DRUGS (17)
  1. HUMIRA [Suspect]
     Indication: PSORIASIS
     Dates: start: 20110601
  2. ASPIRIN [Concomitant]
     Indication: PRODUCT USED FOR UNKNOWN INDICATION
  3. FISH OIL [Concomitant]
     Indication: PRODUCT USED FOR UNKNOWN INDICATION
  4. LOPID [Concomitant]
     Indication: PRODUCT USED FOR UNKNOWN INDICATION
  5. VICODIN [Concomitant]
     Indication: ARTHRALGIA
  6. SYNTHROID [Concomitant]
     Indication: HYPOTHYROIDISM
  7. PAXIL [Concomitant]
     Indication: DEPRESSION
  8. CALCIUM [Concomitant]
     Indication: PRODUCT USED FOR UNKNOWN INDICATION
  9. MINOCYCLINE HCL [Concomitant]
     Indication: HIDRADENITIS
  10. PERCOCET [Concomitant]
     Indication: ARTHRALGIA
  11. NEURONTIN [Concomitant]
     Indication: SCOLIOSIS
  12. HYDROCHLOROTHIAZIDE [Concomitant]
     Indication: HYPERTENSION
  13. PROVENTIL [Concomitant]
     Indication: ASTHMA
  14. ZOCOR [Concomitant]
     Indication: BLOOD CHOLESTEROL INCREASED
  15. OMEPRAZOLE [Concomitant]
     Indication: GASTROOESOPHAGEAL REFLUX DISEASE
  16. SINGULAIR [Concomitant]
     Indication: ASTHMA
  17. COZAAR [Concomitant]
     Indication: HYPERTENSION

REACTIONS (5)
  - PRURITUS [None]
  - RASH [None]
  - FUNGAL INFECTION [None]
  - BREAST ENGORGEMENT [None]
  - PSORIASIS [None]
